FAERS Safety Report 18330114 (Version 1)
Quarter: 2020Q3

REPORT INFORMATION
  Report Type: Spontaneous
  Country: FR (occurrence: FR)
  Receive Date: 20200930
  Receipt Date: 20200930
  Transmission Date: 20201103
  Serious: Yes (Other)
  Sender: FDA-Public Use
  Company Number: FR-ASTRAZENECA-2020SF22339

PATIENT
  Age: 80 Year
  Sex: Male
  Weight: 93 kg

DRUGS (10)
  1. XEROQUEL LP [Suspect]
     Active Substance: QUETIAPINE FUMARATE
     Indication: BEHAVIOUR DISORDER
     Route: 048
     Dates: start: 20200310, end: 20200311
  2. LOVENOX [Concomitant]
     Active Substance: ENOXAPARIN SODIUM
     Dosage: 1.0DF UNKNOWN
     Route: 058
  3. DOLIPRANE [Concomitant]
     Active Substance: ACETAMINOPHEN
     Dosage: 8.0DF UNKNOWN
     Route: 048
  4. XATRAL LP [Concomitant]
     Active Substance: ALFUZOSIN
     Dosage: 1.0DF UNKNOWN
     Route: 048
  5. ZYLORIC [Concomitant]
     Active Substance: ALLOPURINOL
     Dosage: 1.0DF UNKNOWN
     Route: 048
  6. OXYNORM [Concomitant]
     Active Substance: OXYCODONE HYDROCHLORIDE
     Dosage: 1.0DF UNKNOWN
     Route: 048
  7. ZYMAD [Concomitant]
     Active Substance: CHOLECALCIFEROL
     Route: 048
     Dates: start: 20200303, end: 20200501
  8. ZOPICLONE [Concomitant]
     Active Substance: ZOPICLONE
     Route: 048
     Dates: start: 20200303, end: 20200401
  9. RISPERIDONE. [Suspect]
     Active Substance: RISPERIDONE
     Indication: BEHAVIOUR DISORDER
     Route: 048
     Dates: start: 20200228, end: 20200329
  10. LERCAN [Concomitant]
     Active Substance: LERCANIDIPINE
     Dosage: 1.0DF UNKNOWN
     Route: 048

REACTIONS (1)
  - Neuroleptic malignant syndrome [Recovered/Resolved]

NARRATIVE: CASE EVENT DATE: 20200311
